FAERS Safety Report 21556767 (Version 1)
Quarter: 2022Q4

REPORT INFORMATION
  Report Type: Spontaneous
  Country: US (occurrence: None)
  Receive Date: 20221104
  Receipt Date: 20221104
  Transmission Date: 20230113
  Serious: Yes (Death)
  Sender: FDA-Public Use
  Company Number: None

PATIENT
  Age: 69 Year
  Sex: Male
  Weight: 69.75 kg

DRUGS (4)
  1. OPDIVO [Suspect]
     Active Substance: NIVOLUMAB
     Dosage: OTHER FREQUENCY : ONE TIME?
     Route: 041
     Dates: start: 20220830, end: 20220830
  2. FLUOROURACIL [Concomitant]
     Active Substance: FLUOROURACIL
     Dates: start: 20220719, end: 20220830
  3. OXALIPLATIN [Concomitant]
     Active Substance: OXALIPLATIN
     Dates: start: 20220719, end: 20220830
  4. Leuovorin [Concomitant]
     Dates: start: 20220719, end: 20220830

REACTIONS (4)
  - Dermatomyositis [None]
  - Nerve injury [None]
  - Neuropathic muscular atrophy [None]
  - Dysphagia [None]
